FAERS Safety Report 5344040-7 (Version None)
Quarter: 2007Q2

REPORT INFORMATION
  Report Type: 
  Country: None (occurrence: None)
  Receive Date: 20070604
  Receipt Date: 20070530
  Transmission Date: 20071010
  Serious: Yes (Other)
  Sender: FDA-Public Use
  Company Number: A0651598A

PATIENT
  Age: 73 Year
  Sex: Male
  Weight: 97.7 kg

DRUGS (7)
  1. REQUIP [Suspect]
     Indication: RESTLESS LEGS SYNDROME
     Route: 048
     Dates: start: 20070401
  2. BENICAR [Concomitant]
  3. LIPITOR [Concomitant]
  4. METFORMIN HCL [Concomitant]
  5. ACTOS [Concomitant]
  6. GLIPIZIDE [Concomitant]
  7. FLOMAX [Concomitant]

REACTIONS (4)
  - DIPLOPIA [None]
  - EYE PAIN [None]
  - HEADACHE [None]
  - VITH NERVE PARALYSIS [None]
